FAERS Safety Report 18842829 (Version 2)
Quarter: 2021Q1

REPORT INFORMATION
  Report Type: Spontaneous
  Country: ES (occurrence: ES)
  Receive Date: 20210203
  Receipt Date: 20210224
  Transmission Date: 20210419
  Serious: No
  Sender: FDA-Public Use
  Company Number: ES-EISAI MEDICAL RESEARCH-EC-2021-087178

PATIENT
  Age: 13 Year
  Sex: Male
  Weight: 64 kg

DRUGS (2)
  1. LEVETIRACETAM. [Concomitant]
     Active Substance: LEVETIRACETAM
     Indication: JUVENILE MYOCLONIC EPILEPSY
     Dosage: FREQUENCY UNKNOWN
     Route: 065
     Dates: start: 202008
  2. FYCOMPA [Suspect]
     Active Substance: PERAMPANEL
     Indication: JUVENILE MYOCLONIC EPILEPSY
     Route: 048
     Dates: start: 202010, end: 20201212

REACTIONS (5)
  - Mood altered [Recovered/Resolved]
  - Morose [Recovered/Resolved]
  - Anger [Recovered/Resolved]
  - Irritability [Recovered/Resolved]
  - Suicidal ideation [Recovered/Resolved]

NARRATIVE: CASE EVENT DATE: 2020
